FAERS Safety Report 20994410 (Version 1)
Quarter: 2022Q2

REPORT INFORMATION
  Report Type: Report from Study
  Country: CA (occurrence: CA)
  Receive Date: 20220622
  Receipt Date: 20220622
  Transmission Date: 20220721
  Serious: Yes (Hospitalization, Other)
  Sender: FDA-Public Use
  Company Number: CA-TAKEDA-SPV1-2009-00234

PATIENT
  Age: 11 Year
  Sex: Male
  Weight: 30 kg

DRUGS (33)
  1. IDURSULFASE [Suspect]
     Active Substance: IDURSULFASE
     Indication: Mucopolysaccharidosis II
     Dosage: 0.5 MILLIGRAM/KILOGRAM, 1X/WEEK
     Route: 042
     Dates: start: 20080813, end: 20090909
  2. IDURSULFASE [Suspect]
     Active Substance: IDURSULFASE
     Dosage: 0.5 MILLIGRAM/KILOGRAM, 1/WEEK
     Route: 042
     Dates: start: 20100726
  3. PULMICORT TURBUHALER [Concomitant]
     Active Substance: BUDESONIDE
     Indication: Product used for unknown indication
     Dosage: 1 MG, 2X/DAY:BID
     Route: 065
     Dates: start: 2008
  4. ACETAMINOPHEN [Concomitant]
     Active Substance: ACETAMINOPHEN
     Indication: Product used for unknown indication
     Dosage: 350 MG, PRN
     Route: 065
     Dates: start: 20080822
  5. ACETAMINOPHEN [Concomitant]
     Active Substance: ACETAMINOPHEN
     Dosage: 450 MG, PRN
     Route: 065
     Dates: start: 20080813, end: 20080911
  6. ALBUTEROL [Concomitant]
     Active Substance: ALBUTEROL
     Indication: Premedication
     Dosage: 0.9 ML, OTHER (PRN)
     Route: 065
     Dates: start: 20080813
  7. ALBUTEROL [Concomitant]
     Active Substance: ALBUTEROL
     Dosage: 1 DF, PRN
     Route: 065
     Dates: start: 2005
  8. MELATONIN [Concomitant]
     Active Substance: MELATONIN
     Indication: Sleep disorder
     Dosage: 2 MG, 1X/DAY:QD
     Route: 065
     Dates: start: 200803
  9. TEGRETOL [Concomitant]
     Active Substance: CARBAMAZEPINE
     Indication: Nervous system disorder
     Dosage: 120 MG, 2X/DAY:BID
     Route: 065
     Dates: start: 20070514
  10. FLONASE [Concomitant]
     Active Substance: FLUTICASONE PROPIONATE
     Indication: Product used for unknown indication
     Dosage: 50 UG, 2X/DAY:BID
     Route: 065
     Dates: start: 2007
  11. ZANTAC                             /00550801/ [Concomitant]
     Indication: Product used for unknown indication
     Dosage: 30 MG, 1X/DAY:QD
     Route: 065
     Dates: start: 2006
  12. GABAPENTIN [Concomitant]
     Active Substance: GABAPENTIN
     Indication: Pain
     Route: 050
  13. MELATONIN [Concomitant]
     Active Substance: MELATONIN
     Indication: Sleep disorder
     Route: 050
  14. MELATONIN [Concomitant]
     Active Substance: MELATONIN
     Dosage: UNK
     Route: 048
     Dates: start: 200803
  15. CHOLECALCIFEROL [Concomitant]
     Active Substance: CHOLECALCIFEROL
     Indication: Supplementation therapy
     Dosage: UNK
     Route: 050
  16. CLONAZEPAM [Concomitant]
     Active Substance: CLONAZEPAM
     Indication: Sleep disorder
     Dosage: UNK
     Route: 050
  17. LACTULOSE [Concomitant]
     Active Substance: LACTULOSE
     Indication: Supplementation therapy
     Route: 050
  18. FLONASE [Concomitant]
     Active Substance: FLUTICASONE PROPIONATE
     Indication: Respiratory disorder
     Dosage: UNK
     Route: 055
     Dates: start: 2005, end: 2007
  19. FLONASE [Concomitant]
     Active Substance: FLUTICASONE PROPIONATE
     Dosage: UNK
     Route: 055
     Dates: start: 2007
  20. VENTOLIN [Concomitant]
     Active Substance: ALBUTEROL SULFATE
     Indication: Respiratory disorder
     Dosage: UNK
     Route: 065
     Dates: start: 2005
  21. VENTOLIN [Concomitant]
     Active Substance: ALBUTEROL SULFATE
     Dosage: UNK
     Route: 055
     Dates: start: 20080813
  22. ZANTAC [Concomitant]
     Active Substance: RANITIDINE HYDROCHLORIDE
     Indication: Gastrointestinal disorder
     Dosage: UNK
     Route: 048
     Dates: start: 2006
  23. CARBAMAZEPINE [Concomitant]
     Active Substance: CARBAMAZEPINE
     Indication: Nervous system disorder
     Dosage: UNK
     Route: 048
     Dates: start: 20070514
  24. BUDESONIDE [Concomitant]
     Active Substance: BUDESONIDE
     Indication: Respiratory disorder
     Dosage: UNK
     Route: 055
     Dates: start: 2008
  25. ACETAMINOPHEN [Concomitant]
     Active Substance: ACETAMINOPHEN
     Indication: Premedication
     Dosage: UNK
     Route: 048
     Dates: start: 20080813, end: 20080911
  26. ACETAMINOPHEN [Concomitant]
     Active Substance: ACETAMINOPHEN
     Dosage: UNK
     Route: 048
     Dates: start: 20080822
  27. ACETAMINOPHEN [Concomitant]
     Active Substance: ACETAMINOPHEN
     Dosage: UNK
     Route: 050
     Dates: start: 20080911
  28. DIPHENHYDRAMINE [Concomitant]
     Active Substance: DIPHENHYDRAMINE
     Indication: Premedication
     Dosage: UNK
     Route: 050
     Dates: start: 20081001
  29. METHYLPREDNISOLONE [Concomitant]
     Active Substance: METHYLPREDNISOLONE
     Indication: Premedication
     Dosage: UNK
     Route: 042
     Dates: start: 20081008, end: 20081126
  30. METHYLPREDNISOLONE [Concomitant]
     Active Substance: METHYLPREDNISOLONE
     Dosage: UNK
     Route: 042
     Dates: start: 20081126
  31. ATROVENT [Concomitant]
     Active Substance: IPRATROPIUM BROMIDE
     Indication: Nasal congestion
     Dosage: UNK
     Route: 045
     Dates: start: 20110611
  32. AMOXICILLIN [Concomitant]
     Active Substance: AMOXICILLIN
     Indication: Infection
     Dosage: UNK
     Route: 065
     Dates: start: 20120111, end: 20120118
  33. PREDNISONE [Concomitant]
     Active Substance: PREDNISONE
     Indication: Premedication
     Dosage: UNK
     Route: 048
     Dates: start: 20120304

REACTIONS (1)
  - Pneumonia aspiration [Recovered/Resolved]

NARRATIVE: CASE EVENT DATE: 20080903
